FAERS Safety Report 11531106 (Version 1)
Quarter: 2015Q3

REPORT INFORMATION
  Report Type: Spontaneous
  Country: US (occurrence: US)
  Receive Date: 20150903
  Receipt Date: 20150903
  Transmission Date: 20151125
  Serious: Yes (Other)
  Sender: FDA-Public Use
  Company Number: US-ELI_LILLY_AND_COMPANY-US201304005246

PATIENT
  Sex: Male

DRUGS (3)
  1. CYMBALTA [Suspect]
     Active Substance: DULOXETINE HYDROCHLORIDE
     Indication: MAJOR DEPRESSION
     Dosage: 120 MG, QD
     Dates: start: 20121215
  2. CYMBALTA [Suspect]
     Active Substance: DULOXETINE HYDROCHLORIDE
     Dosage: 120 MG, QD
  3. CYMBALTA [Suspect]
     Active Substance: DULOXETINE HYDROCHLORIDE
     Dosage: 240 MG, QD

REACTIONS (17)
  - Seizure [Unknown]
  - Nausea [Recovered/Resolved]
  - Psychomotor hyperactivity [Unknown]
  - Abnormal behaviour [Unknown]
  - Influenza like illness [Recovered/Resolved]
  - Intentional product misuse [Unknown]
  - Mania [Unknown]
  - Personality change [Unknown]
  - Drug withdrawal syndrome [Unknown]
  - Prescribed overdose [Unknown]
  - Muscle spasms [Unknown]
  - Muscle tightness [Unknown]
  - Disinhibition [Unknown]
  - Pain [Not Recovered/Not Resolved]
  - Malaise [Recovered/Resolved]
  - Panic attack [Unknown]
  - Paraesthesia [Not Recovered/Not Resolved]
